FAERS Safety Report 9365227 (Version 1)
Quarter: 2013Q2

REPORT INFORMATION
  Report Type: Spontaneous
  Country: IT (occurrence: IT)
  Receive Date: 20130624
  Receipt Date: 20130624
  Transmission Date: 20140414
  Serious: Yes (Hospitalization, Other)
  Sender: FDA-Public Use
  Company Number: IT-BRISTOL-MYERS SQUIBB COMPANY-18730861

PATIENT
  Age: 73 Year
  Sex: Female

DRUGS (22)
  1. ABATACEPT [Suspect]
     Indication: RHEUMATOID ARTHRITIS
     Dosage: INT:JUN10.RESUMED ON:FEB11. INT:MAR11:RESTARTED ON UNK DATE. DEC 2013 INT.
  2. MEDROL [Concomitant]
  3. LANSOPRAZOLE [Concomitant]
     Dosage: TAB:30 MG ALSO TAKEN
  4. NATECAL D [Concomitant]
     Dosage: 1DF:1TAB:NATECAL D3
  5. METHOTREXATE [Concomitant]
     Dosage: 7.5MG IS ALSO TAKEN/WK
  6. FOLINA [Concomitant]
     Dosage: 1 TAB THE DAY AFTER
  7. ACTONEL [Concomitant]
     Dosage: 1 TAB WEEKLY
  8. LASIX [Concomitant]
     Dosage: 1 TAB ON ALTERNATE DAYS
  9. KANRENOL [Concomitant]
     Dosage: TAB
  10. CONGESCOR [Concomitant]
     Dosage: 1/2 TAB
  11. CELEBREX [Concomitant]
     Dosage: 1 TAB
  12. PENICILLIN [Concomitant]
     Dosage: PENICILLIN R 1.200.000 U
  13. PURSENNID [Concomitant]
     Dosage: 1DF:2 TAB
  14. TACHIPIRINA [Concomitant]
  15. CONTRAMAL [Concomitant]
  16. CEBION [Concomitant]
     Dosage: 1DF:1 TAB
  17. CARDICOR [Concomitant]
  18. LAXATIVES [Concomitant]
     Dosage: 2DF:2TAB
  19. KAYEXALATE [Concomitant]
  20. ACTONEL [Concomitant]
     Dosage: 1 TAB
  21. PORTOLAC [Concomitant]
     Dosage: 1DF:2UTS
  22. TARGIN [Concomitant]
     Dosage: 1 TAB

REACTIONS (9)
  - Urinary tract infection [Unknown]
  - Skin ulcer [Recovering/Resolving]
  - Intestinal obstruction [Unknown]
  - Haematoma [Unknown]
  - Cataract [Unknown]
  - Arthropathy [Unknown]
  - Erysipelas [Unknown]
  - Bronchitis [Unknown]
  - Contusion [Unknown]
